FAERS Safety Report 5355416-6 (Version None)
Quarter: 2007Q2

REPORT INFORMATION
  Report Type: 
  Country: None (occurrence: None)
  Receive Date: 20070611
  Receipt Date: 20070611
  Transmission Date: 20071010
  Serious: Yes (Hospitalization)
  Sender: FDA-Public Use
  Company Number: None

PATIENT
  Age: 55 Year

DRUGS (1)
  1. LITHIUM CARBONATE [Suspect]
     Indication: BIPOLAR DISORDER
     Dosage: 600MG DAILY PO
     Route: 048

REACTIONS (5)
  - AGITATION [None]
  - MUSCLE TWITCHING [None]
  - NEUROMYOPATHY [None]
  - THERAPEUTIC AGENT TOXICITY [None]
  - TREMOR [None]
